FAERS Safety Report 6278673-0 (Version None)
Quarter: 2009Q3

REPORT INFORMATION
  Report Type: 
  Country: None (occurrence: None)
  Receive Date: 20090721
  Receipt Date: 20090708
  Transmission Date: 20100115
  Serious: Yes (Other)
  Sender: FDA-Public Use
  Company Number: 209S1012287

PATIENT
  Age: 47 Year
  Sex: Female

DRUGS (4)
  1. EPIPEN [Suspect]
     Indication: DRUG HYPERSENSITIVITY
  2. SERTRALINE [Suspect]
     Indication: DEPRESSION
     Dates: end: 20090612
  3. AMOXICILLIN [Suspect]
  4. CLARITIN  /00917501/ [Concomitant]

REACTIONS (11)
  - BLOOD PRESSURE INCREASED [None]
  - DIZZINESS [None]
  - ERYTHEMA [None]
  - HYPOAESTHESIA [None]
  - LOCAL SWELLING [None]
  - PARAESTHESIA [None]
  - PAROSMIA [None]
  - PRURITUS [None]
  - RASH MACULAR [None]
  - SPEECH DISORDER [None]
  - TINNITUS [None]
